FAERS Safety Report 5635939-2 (Version None)
Quarter: 2008Q1

REPORT INFORMATION
  Report Type: 
  Country: None (occurrence: None)
  Receive Date: 20080224
  Receipt Date: 20080221
  Transmission Date: 20080703
  Serious: Yes (Death, Life-Threatening)
  Sender: FDA-Public Use
  Company Number: PHBS2007BE19617

PATIENT
  Age: 70 Year
  Sex: Male

DRUGS (4)
  1. ZOMETA [Suspect]
     Dosage: UNK, UNK
  2. CARVEDILOL [Concomitant]
  3. ASAFLOW [Concomitant]
  4. COVERSYL [Concomitant]

REACTIONS (3)
  - DEATH [None]
  - DIARRHOEA [None]
  - HYPOKALAEMIA [None]
